FAERS Safety Report 5483854-X (Version None)
Quarter: 2007Q4

REPORT INFORMATION
  Report Type: 
  Country: None (occurrence: None)
  Receive Date: 20071012
  Receipt Date: 20070817
  Transmission Date: 20080405
  Serious: Yes (Hospitalization)
  Sender: FDA-Public Use
  Company Number: CN-ASTRAZENECA-2007AP05120

PATIENT
  Age: 857 Month
  Sex: Male
  Weight: 62 kg

DRUGS (1)
  1. IRESSA [Suspect]
     Indication: LUNG NEOPLASM MALIGNANT
     Route: 048
     Dates: start: 20061001

REACTIONS (2)
  - CEREBRAL INFARCTION [None]
  - PARANEOPLASTIC CEREBELLAR DEGENERATION [None]
